FAERS Safety Report 8060148-X (Version None)
Quarter: 2012Q1

REPORT INFORMATION
  Report Type: 
  Country: None (occurrence: None)
  Receive Date: 20120119
  Receipt Date: 20120119
  Transmission Date: 20120608
  Serious: Yes (Hospitalization)
  Sender: FDA-Public Use
  Company Number: None

PATIENT
  Age: 59 Year
  Weight: 103.2 kg

DRUGS (19)
  1. LABETALOL HCL [Concomitant]
  2. PROMETHAZINE [Concomitant]
  3. OXYCODONE HCL AND ACETAMINOPHEN [Concomitant]
  4. ADVAIR DISKUS 100/50 [Concomitant]
  5. VENTOLIN [Concomitant]
  6. NORVASC [Suspect]
     Indication: HYPERTENSION
     Dosage: 10 MG DAILY PO  CHRONIC
     Route: 048
  7. FLUTICASONE PROPIONATE [Concomitant]
  8. DEXILANT [Concomitant]
  9. LANTUS [Concomitant]
  10. LASIX [Concomitant]
  11. RISPERDAL [Concomitant]
  12. SEROQUEL [Concomitant]
  13. PRAMIPEXOLE DIHYCHLLORIDE [Concomitant]
  14. MELOXICAM [Suspect]
     Indication: PAIN
     Dosage: 50MG QDAY PO  CHRONIC
     Route: 048
  15. OMEPRAZOLE [Concomitant]
  16. NIFEDIPINE [Concomitant]
  17. LORATADINE [Concomitant]
  18. KLOR-CON [Concomitant]
  19. FLUOXETINE [Concomitant]

REACTIONS (1)
  - ANGIOEDEMA [None]
